FAERS Safety Report 6826941-3 (Version None)
Quarter: 2010Q3

REPORT INFORMATION
  Report Type: 
  Country: None (occurrence: None)
  Receive Date: 20100709
  Receipt Date: 20100707
  Transmission Date: 20110219
  Serious: Yes (Death)
  Sender: FDA-Public Use
  Company Number: MX-B.I. PHARMACEUTICALS,INC./RIDGEFIELD-2010-MX-00069MX

PATIENT
  Age: 46 Year
  Sex: Female

DRUGS (5)
  1. APTIVUS [Suspect]
     Indication: ACQUIRED IMMUNODEFICIENCY SYNDROME
     Dosage: 2 CAPSULES DAILY
     Route: 048
     Dates: start: 20090618
  2. RITONAVIR [Concomitant]
     Indication: ACQUIRED IMMUNODEFICIENCY SYNDROME
     Dosage: 2 CAPSULES DAILY
     Route: 048
     Dates: start: 20090618
  3. KIVEXA [Concomitant]
     Indication: ACQUIRED IMMUNODEFICIENCY SYNDROME
     Dosage: 1 TABLET DAILY
     Route: 048
     Dates: start: 20090618
  4. TRUVADA [Concomitant]
     Route: 048
     Dates: start: 20080613, end: 20090618
  5. KALETRA [Concomitant]
     Route: 048
     Dates: start: 20080613, end: 20090618

REACTIONS (1)
  - DEATH [None]
